FAERS Safety Report 6073219-4 (Version None)
Quarter: 2009Q1

REPORT INFORMATION
  Report Type: 
  Country: None (occurrence: None)
  Receive Date: 20090211
  Receipt Date: 20081023
  Transmission Date: 20090719
  Serious: No
  Sender: FDA-Public Use
  Company Number: A0753300A

PATIENT
  Age: 53 Year
  Sex: Female

DRUGS (2)
  1. ALTABAX [Suspect]
     Indication: IMPETIGO
     Dosage: 1APP TWICE PER DAY
     Route: 061
     Dates: start: 20081013
  2. HYDROCHLOROTHIAZIDE [Concomitant]

REACTIONS (4)
  - APPLICATION SITE IRRITATION [None]
  - APPLICATION SITE PAIN [None]
  - ERYTHEMA [None]
  - WOUND [None]
